FAERS Safety Report 20976036 (Version 2)
Quarter: 2022Q3

REPORT INFORMATION
  Report Type: Spontaneous
  Country: TR (occurrence: TR)
  Receive Date: 20220617
  Receipt Date: 20220810
  Transmission Date: 20221026
  Serious: Yes (Hospitalization, Other)
  Sender: FDA-Public Use
  Company Number: TR-BAYER-2022P004190

PATIENT
  Age: 51 Year
  Sex: Male

DRUGS (4)
  1. XARELTO [Suspect]
     Active Substance: RIVAROXABAN
     Indication: Product used for unknown indication
     Dosage: 20 MG
     Route: 048
  2. XARELTO [Suspect]
     Active Substance: RIVAROXABAN
     Indication: Product used for unknown indication
     Dosage: 20 MG, UNK
     Route: 048
  3. ADEMPAS [Concomitant]
     Active Substance: RIOCIGUAT
     Dosage: UNK
  4. ADEMPAS [Concomitant]
     Active Substance: RIOCIGUAT
     Dosage: UNK

REACTIONS (2)
  - Haemorrhage [Unknown]
  - Pulmonary embolism [Unknown]
